FAERS Safety Report 11887082 (Version 1)
Quarter: 2016Q1

REPORT INFORMATION
  Report Type: Spontaneous
  Country: US (occurrence: US)
  Receive Date: 20160104
  Receipt Date: 20160104
  Transmission Date: 20160526
  Serious: No
  Sender: FDA-Public Use
  Company Number: US-ALLERGAN-1419109US

PATIENT
  Age: 59 Year
  Sex: Female

DRUGS (2)
  1. ACULAR LS [Suspect]
     Active Substance: KETOROLAC TROMETHAMINE
     Indication: EYE PRURITUS
  2. ACULAR LS [Suspect]
     Active Substance: KETOROLAC TROMETHAMINE
     Indication: FOREIGN BODY SENSATION IN EYES
     Dosage: 2 GTT, PRN
     Route: 047
     Dates: start: 20140417

REACTIONS (2)
  - Off label use [Unknown]
  - Eye irritation [Unknown]

NARRATIVE: CASE EVENT DATE: 20140825
